FAERS Safety Report 7549914-4 (Version None)
Quarter: 2011Q2

REPORT INFORMATION
  Report Type: 
  Country: None (occurrence: None)
  Receive Date: 20110615
  Receipt Date: 20110609
  Transmission Date: 20111010
  Serious: Yes (Other)
  Sender: FDA-Public Use
  Company Number: US-PFIZER INC-2011127064

PATIENT
  Sex: Female

DRUGS (5)
  1. BENADRYL [Concomitant]
     Indication: HYPERSENSITIVITY
     Dosage: 25 MG, 2X/DAY
     Dates: start: 20100801
  2. RANITIDINE [Concomitant]
     Indication: HYPERSENSITIVITY
     Dosage: 150 MG, 2X/DAY
     Dates: start: 20100801
  3. ALLEGRA [Concomitant]
     Indication: HYPERSENSITIVITY
     Dosage: 180 MG, 2X/DAY
     Dates: start: 20100801
  4. CORTISONE [Concomitant]
     Dosage: UNK
  5. AZITHROMYCIN [Suspect]
     Indication: SINUSITIS
     Dosage: 500 MG, DAILY
     Route: 048
     Dates: start: 20110607, end: 20110608

REACTIONS (1)
  - SWELLING FACE [None]
